FAERS Safety Report 25107589 (Version 2)
Quarter: 2025Q1

REPORT INFORMATION
  Report Type: Spontaneous
  Country: JP (occurrence: JP)
  Receive Date: 20250321
  Receipt Date: 20250331
  Transmission Date: 20250409
  Serious: Yes (Hospitalization, Other)
  Sender: MERCK SHARP & DOHME LLC
  Company Number: JP-MSD-M2024-24084

PATIENT
  Age: 54 Year
  Sex: Female

DRUGS (3)
  1. KEYTRUDA [Suspect]
     Active Substance: PEMBROLIZUMAB
     Indication: Head and neck cancer stage IV
     Dosage: DOSE DESCRIPTION : 200 MILLIGRAM, Q3W?DAILY DOSE : 9.4 MILLIGRAM?REGIMEN DOSE : 800  MILLIGRAM
     Route: 041
     Dates: start: 20231114, end: 20240201
  2. KEYTRUDA [Suspect]
     Active Substance: PEMBROLIZUMAB
     Indication: Head and neck cancer stage IV
     Route: 041
     Dates: start: 202406
  3. DENOSUMAB [Concomitant]
     Active Substance: DENOSUMAB
     Indication: Pathological fracture
     Route: 065

REACTIONS (6)
  - Fulminant type 1 diabetes mellitus [Unknown]
  - Malignant neoplasm progression [Unknown]
  - Diabetic ketoacidosis [Unknown]
  - Tubulointerstitial nephritis [Unknown]
  - Immune-mediated hypothyroidism [Recovered/Resolved]
  - Immune-mediated hypophysitis [Recovered/Resolved]

NARRATIVE: CASE EVENT DATE: 20240101
